FAERS Safety Report 11863381 (Version 1)
Quarter: 2015Q4

REPORT INFORMATION
  Report Type: Spontaneous
  Country: GB (occurrence: GB)
  Receive Date: 20151223
  Receipt Date: 20151223
  Transmission Date: 20160305
  Serious: Yes (Hospitalization, Congenital Anomaly)
  Sender: FDA-Public Use
  Company Number: GB-WATSON-2015-21523

PATIENT

DRUGS (5)
  1. GAVISCON ADVANCE [Concomitant]
     Active Substance: POTASSIUM BICARBONATE\SODIUM ALGINATE
     Indication: PRODUCT USED FOR UNKNOWN INDICATION
     Dosage: UNK, AT 4 MONTHS GESTATION
     Route: 064
  2. PROMETHAZINE TEOCLATE [Concomitant]
     Active Substance: PROMETHAZINE TEOCLATE
     Indication: NAUSEA
     Dosage: UNK, AT 6 MONTHS GESTATION
     Route: 064
  3. FLUOXETINE [Suspect]
     Active Substance: FLUOXETINE HYDROCHLORIDE
     Indication: DEPRESSION
     Dosage: 60 MG, UNK, THROUGHOUT ENTIRE PREGNANCY
     Route: 064
     Dates: start: 20130226
  4. METOCLOPRAMIDE. [Concomitant]
     Active Substance: METOCLOPRAMIDE
     Indication: PRODUCT USED FOR UNKNOWN INDICATION
     Dosage: UNK, AT 2 MONTHS GESTATION
     Route: 064
  5. FERROUS FUMARATE [Concomitant]
     Active Substance: FERROUS FUMARATE
     Indication: ANAEMIA
     Dosage: UNK. AT 6 MONTHS GESTATION
     Route: 064

REACTIONS (3)
  - Anal stenosis [Not Recovered/Not Resolved]
  - Foetal exposure during pregnancy [Unknown]
  - Constipation [Not Recovered/Not Resolved]

NARRATIVE: CASE EVENT DATE: 20150220
